FAERS Safety Report 7865792-8 (Version None)
Quarter: 2011Q4

REPORT INFORMATION
  Report Type: 
  Country: None (occurrence: None)
  Receive Date: 20111028
  Receipt Date: 20110224
  Transmission Date: 20120403
  Serious: No
  Sender: FDA-Public Use
  Company Number: US-GLAXOSMITHKLINE-A0915300A

PATIENT
  Age: 84 Year
  Sex: Male

DRUGS (9)
  1. SYNTHROID [Concomitant]
  2. ASPIRIN [Concomitant]
  3. BUMEX [Concomitant]
  4. FUROSEMIDE [Concomitant]
  5. COMBIVENT [Concomitant]
  6. COREG [Concomitant]
  7. NORVASC [Concomitant]
  8. PACERONE [Concomitant]
  9. ADVAIR DISKUS 100/50 [Suspect]
     Indication: CHRONIC OBSTRUCTIVE PULMONARY DISEASE
     Dosage: 1PUFF PER DAY
     Route: 055
     Dates: start: 20100201

REACTIONS (1)
  - DYSPHONIA [None]
